FAERS Safety Report 10928465 (Version 4)
Quarter: 2015Q2

REPORT INFORMATION
  Report Type: Spontaneous
  Country: JP (occurrence: JP)
  Receive Date: 20150319
  Receipt Date: 20150428
  Transmission Date: 20150821
  Serious: Yes (Hospitalization, Other)
  Sender: FDA-Public Use
  Company Number: JP-AMGEN-JPNSP2015025441

PATIENT
  Age: 57 Year
  Sex: Female
  Weight: 67 kg

DRUGS (8)
  1. ENBREL [Suspect]
     Active Substance: ETANERCEPT
     Dosage: 25 MG ONCE WEEKLY
     Route: 058
     Dates: start: 20100302, end: 20120810
  2. ENBREL [Suspect]
     Active Substance: ETANERCEPT
     Dosage: 25 MG ONCE EVERY 10 DAYS
     Route: 058
     Dates: start: 20120811, end: 20131112
  3. METHOTREXATE SODIUM. [Suspect]
     Active Substance: METHOTREXATE SODIUM
     Indication: RHEUMATOID ARTHRITIS
     Dosage: 4 DF, WEEKLY
     Route: 048
     Dates: start: 200711, end: 20150120
  4. PREDOHAN [Concomitant]
     Active Substance: PREDNISOLONE
     Dosage: 2.5 MG, 1X/DAY
     Route: 048
     Dates: start: 20120811
  5. ENBREL [Suspect]
     Active Substance: ETANERCEPT
     Indication: RHEUMATOID ARTHRITIS
     Dosage: 25 MG, 2X/WEEK
     Route: 058
     Dates: start: 20081107, end: 20100301
  6. EDIROL [Concomitant]
     Active Substance: ELDECALCITOL
     Indication: OSTEOPOROSIS
     Dosage: 0.75 MG, 1X/DAY
     Route: 048
     Dates: start: 20120811
  7. ENBREL [Suspect]
     Active Substance: ETANERCEPT
     Dosage: 25 MG ONCE EVERY 14 DAYS
     Route: 058
     Dates: start: 20131113, end: 20150120
  8. PREDOHAN [Concomitant]
     Active Substance: PREDNISOLONE
     Indication: RHEUMATOID ARTHRITIS
     Dosage: 2.5 MG, 2X/DAY
     Route: 048
     Dates: start: 20071116, end: 20120810

REACTIONS (1)
  - Colon cancer metastatic [Unknown]

NARRATIVE: CASE EVENT DATE: 201501
